FAERS Safety Report 5362689-2 (Version None)
Quarter: 2007Q2

REPORT INFORMATION
  Report Type: 
  Country: None (occurrence: None)
  Receive Date: 20070612
  Receipt Date: 20070606
  Transmission Date: 20071010
  Serious: Yes (Death)
  Sender: FDA-Public Use
  Company Number: 2007S1000121

PATIENT
  Age: 7 Day
  Sex: Male
  Weight: 0.82 kg

DRUGS (5)
  1. NITRIC OXIDE [Suspect]
     Indication: LUNG DISORDER
     Dosage: 5 PPM; CONT; INH
     Route: 055
     Dates: start: 20070529, end: 20070604
  2. IBUPROFEN [Concomitant]
  3. THEOPHYLLLINE [Concomitant]
  4. SODIUM BICARBONATE [Concomitant]
  5. SODIUM PHOSPHATE (32 P) [Concomitant]

REACTIONS (9)
  - CONDITION AGGRAVATED [None]
  - HYPOTHERMIA NEONATAL [None]
  - ILEAL PERFORATION [None]
  - METABOLIC ACIDOSIS [None]
  - NEONATAL DISORDER [None]
  - NEONATAL HYPOTENSION [None]
  - NEONATAL RESPIRATORY DISTRESS SYNDROME [None]
  - PATENT DUCTUS ARTERIOSUS [None]
  - PNEUMOPERITONEUM [None]
